FAERS Safety Report 8301261-9 (Version None)
Quarter: 2012Q2

REPORT INFORMATION
  Report Type: 
  Country: None (occurrence: None)
  Receive Date: 20120420
  Receipt Date: 20120416
  Transmission Date: 20120825
  Serious: Yes (Death)
  Sender: FDA-Public Use
  Company Number: CA-ABBOTT-12P-028-0926366-00

PATIENT
  Sex: Male

DRUGS (2)
  1. BICALUTAMIDE [Concomitant]
     Indication: PRODUCT USED FOR UNKNOWN INDICATION
     Dates: start: 20111128
  2. LUPRON DEPOT [Suspect]
     Indication: PROSTATE CANCER
     Route: 030
     Dates: start: 20120111

REACTIONS (5)
  - CERVICAL VERTEBRAL FRACTURE [None]
  - SEPSIS [None]
  - PYREXIA [None]
  - PROSTATE CANCER METASTATIC [None]
  - BAND NEUTROPHIL PERCENTAGE INCREASED [None]
